FAERS Safety Report 25848125 (Version 1)
Quarter: 2025Q3

REPORT INFORMATION
  Report Type: Spontaneous
  Country: US (occurrence: None)
  Receive Date: 20250925
  Receipt Date: 20250925
  Transmission Date: 20251021
  Serious: Yes (Death)
  Sender: FDA-CTU
  Company Number: None

PATIENT
  Age: 72 Year
  Sex: Female

DRUGS (23)
  1. REVLIMID [Suspect]
     Active Substance: LENALIDOMIDE
     Indication: Myelodysplastic syndrome
     Dosage: FREQUENCY : EVERY OTHER DAY;?
     Route: 048
     Dates: start: 20241210
  2. MULTIVITAMIN TABLETS [Concomitant]
  3. ASPIRIN 81 MC CHEWABLE TABLETS [Concomitant]
  4. KETOCONAZOLE 2% CREAM 15GM [Concomitant]
  5. FARXICA 10MG TABLETS [Concomitant]
  6. ACETAMINOPHEN 325MC TABLETS [Concomitant]
  7. FERROUS GLUCONATE 324MG TABLETS [Concomitant]
  8. JANUVIA 50MG TABLETS [Concomitant]
  9. LEVOTHYROXINE 0.05MC (50MCC) TAB [Concomitant]
  10. METOPROLOL SUCCINATE [Concomitant]
     Active Substance: METOPROLOL SUCCINATE
  11. JARDIANCE [Concomitant]
     Active Substance: EMPAGLIFLOZIN
  12. METFORMIN HYDROCHLORIDE [Concomitant]
     Active Substance: METFORMIN HYDROCHLORIDE
  13. OMEPRAZOLE [Concomitant]
     Active Substance: OMEPRAZOLE
  14. WARFARIN [Concomitant]
     Active Substance: WARFARIN
  15. RETACRIT [Concomitant]
     Active Substance: EPOETIN ALFA-EPBX
  16. ACYCLOVIR [Concomitant]
     Active Substance: ACYCLOVIR
  17. BACTRIM DS [Concomitant]
     Active Substance: SULFAMETHOXAZOLE\TRIMETHOPRIM
  18. DECITABINE [Concomitant]
     Active Substance: DECITABINE
  19. TRAMADOL [Concomitant]
     Active Substance: TRAMADOL
  20. ONDANSETRON [Concomitant]
     Active Substance: ONDANSETRON
  21. FUROSEMIDE [Concomitant]
     Active Substance: FUROSEMIDE
  22. ZOMETA [Concomitant]
     Active Substance: ZOLEDRONIC ACID
  23. VITAMIN D3 [Concomitant]
     Active Substance: CHOLECALCIFEROL

REACTIONS (1)
  - Death [None]
